FAERS Safety Report 15742780 (Version 1)
Quarter: 2018Q4

REPORT INFORMATION
  Report Type: Spontaneous
  Country: SE (occurrence: SE)
  Receive Date: 20181219
  Receipt Date: 20181219
  Transmission Date: 20190205
  Serious: Yes (Hospitalization)
  Sender: FDA-Public Use
  Company Number: SE-009507513-1812SWE005049

PATIENT
  Age: 58 Year
  Sex: Male

DRUGS (2)
  1. THERALEN [Concomitant]
     Active Substance: TRIMEPRAZINE
     Dosage: STRENGTH: 40 MG/ML.
     Route: 048
  2. ZEPATIER [Suspect]
     Active Substance: ELBASVIR\GRAZOPREVIR
     Indication: CHRONIC HEPATITIS C
     Dosage: 50/100MG, 1 DF, QD
     Route: 048
     Dates: start: 20181026, end: 20181106

REACTIONS (1)
  - Oedema peripheral [Not Recovered/Not Resolved]

NARRATIVE: CASE EVENT DATE: 20181031
